FAERS Safety Report 12140811 (Version 1)
Quarter: 2016Q1

REPORT INFORMATION
  Report Type: Spontaneous
  Country: US (occurrence: US)
  Receive Date: 20160303
  Receipt Date: 20160303
  Transmission Date: 20160526
  Serious: No
  Sender: FDA-Public Use
  Company Number: US-BIOGEN-2016BI00195693

PATIENT
  Age: 60 Year
  Sex: Female

DRUGS (1)
  1. PLEGRIDY [Suspect]
     Active Substance: PEGINTERFERON BETA-1A
     Indication: MULTIPLE SCLEROSIS
     Route: 058
     Dates: start: 20141204

REACTIONS (5)
  - Anxiety [Recovered/Resolved]
  - Wrong technique in product usage process [Recovered/Resolved]
  - Hyperhidrosis [Recovered/Resolved]
  - Drug dose omission [Recovered/Resolved]
  - Procedural anxiety [Recovered/Resolved]

NARRATIVE: CASE EVENT DATE: 20160204
